FAERS Safety Report 6273927-6 (Version None)
Quarter: 2009Q3

REPORT INFORMATION
  Report Type: 
  Country: None (occurrence: None)
  Receive Date: 20090720
  Receipt Date: 20090710
  Transmission Date: 20100115
  Serious: Yes (Life-Threatening)
  Sender: FDA-Public Use
  Company Number: FR-CELGENEUS-056-20785-09070790

PATIENT
  Sex: Male
  Weight: 91 kg

DRUGS (5)
  1. THALIDOMIDE [Suspect]
     Indication: MULTIPLE MYELOMA
     Dosage: 100-400MG A DAY
     Route: 048
     Dates: start: 20010720, end: 20081212
  2. PAMIDRONATE DISODIUM [Concomitant]
     Indication: MULTIPLE MYELOMA
     Route: 065
  3. ZELITREX [Concomitant]
     Indication: INFECTION PROPHYLAXIS
     Route: 048
  4. LEVOTHYROX [Concomitant]
     Indication: THYROID DISORDER
     Route: 048
  5. LYTOS [Concomitant]
     Indication: PROPHYLAXIS
     Route: 048

REACTIONS (1)
  - ACUTE LYMPHOCYTIC LEUKAEMIA [None]
